FAERS Safety Report 19909178 (Version 1)
Quarter: 2021Q4

REPORT INFORMATION
  Report Type: Spontaneous
  Country: US (occurrence: US)
  Receive Date: 20211001
  Receipt Date: 20211001
  Transmission Date: 20220303
  Serious: No
  Sender: FDA-Public Use
  Company Number: US-AMARIN PHARMA, INC.-2021AMR000007

PATIENT
  Age: 77 Year
  Sex: Male
  Weight: 79.45 kg

DRUGS (7)
  1. VASCEPA [Suspect]
     Active Substance: ICOSAPENT ETHYL
     Indication: Blood triglycerides increased
     Route: 048
     Dates: start: 202007
  2. PRAVASTATIN [Concomitant]
     Active Substance: PRAVASTATIN
     Indication: Blood cholesterol increased
     Route: 048
     Dates: start: 1991
  3. OMEPRAZOLE [Concomitant]
     Active Substance: OMEPRAZOLE
     Indication: Barrett^s oesophagus
     Route: 048
     Dates: start: 2001
  4. CARAFATE [Concomitant]
     Active Substance: SUCRALFATE
     Indication: Barrett^s oesophagus
     Route: 048
     Dates: start: 2016
  5. FOLIC ACID [Concomitant]
     Active Substance: FOLIC ACID
     Indication: Barrett^s oesophagus
     Route: 048
     Dates: start: 2016
  6. VITAMINS [Concomitant]
     Active Substance: VITAMINS
     Indication: Product used for unknown indication
  7. ACIDOPHILUS [Concomitant]
     Active Substance: LACTOBACILLUS ACIDOPHILUS
     Indication: Barrett^s oesophagus

REACTIONS (4)
  - Eructation [Recovered/Resolved]
  - Dysgeusia [Recovered/Resolved]
  - Intentional underdose [Not Recovered/Not Resolved]
  - Product storage error [Not Recovered/Not Resolved]

NARRATIVE: CASE EVENT DATE: 20200101
